FAERS Safety Report 15961461 (Version 5)
Quarter: 2020Q3

REPORT INFORMATION
  Report Type: Spontaneous
  Country: US (occurrence: US)
  Receive Date: 20190214
  Receipt Date: 20200925
  Transmission Date: 20201102
  Serious: Yes (Death, Other)
  Sender: FDA-Public Use
  Company Number: US-ASTRAZENECA-2018SF21073

PATIENT
  Age: 21641 Day
  Sex: Female

DRUGS (22)
  1. LIDOCAINE. [Concomitant]
     Active Substance: LIDOCAINE
  2. DULOXETINE. [Concomitant]
     Active Substance: DULOXETINE
  3. IMIPRAMINE [Concomitant]
     Active Substance: IMIPRAMINE
  4. LANTUS [Concomitant]
     Active Substance: INSULIN GLARGINE
  5. PROAIR HFA [Concomitant]
     Active Substance: ALBUTEROL SULFATE
  6. LYRICA [Concomitant]
     Active Substance: PREGABALIN
  7. NEXIUM [Suspect]
     Active Substance: ESOMEPRAZOLE MAGNESIUM
     Indication: GASTROOESOPHAGEAL REFLUX DISEASE
     Route: 048
     Dates: start: 20100101, end: 20171207
  8. NEXIUM [Suspect]
     Active Substance: ESOMEPRAZOLE MAGNESIUM
     Indication: GASTROOESOPHAGEAL REFLUX DISEASE
     Dosage: UNKNOWN
     Route: 048
     Dates: start: 20100101, end: 20171020
  9. GLUCAGON. [Concomitant]
     Active Substance: GLUCAGON
  10. PREMARIN [Concomitant]
     Active Substance: ESTROGENS, CONJUGATED
  11. AMLODIPINE [Concomitant]
     Active Substance: AMLODIPINE BESYLATE
  12. HYDRALAZINE [Concomitant]
     Active Substance: HYDRALAZINE HYDROCHLORIDE
  13. INSULIN [Concomitant]
     Active Substance: INSULIN NOS
  14. NEXIUM [Suspect]
     Active Substance: ESOMEPRAZOLE MAGNESIUM
     Indication: GASTROOESOPHAGEAL REFLUX DISEASE
     Dosage: 20.0MG UNKNOWN
     Route: 048
  15. FUROSEMIDE. [Concomitant]
     Active Substance: FUROSEMIDE
  16. MUCINEX [Concomitant]
     Active Substance: GUAIFENESIN
  17. ATORVASTATIN [Concomitant]
     Active Substance: ATORVASTATIN
  18. ASPIRIN. [Concomitant]
     Active Substance: ASPIRIN
  19. SYMBICORT [Concomitant]
     Active Substance: BUDESONIDE\FORMOTEROL FUMARATE DIHYDRATE
  20. FLUTICASONE. [Concomitant]
     Active Substance: FLUTICASONE
  21. SPIRIVA [Concomitant]
     Active Substance: TIOTROPIUM BROMIDE MONOHYDRATE
  22. METOPROLOL TARTRATE. [Concomitant]
     Active Substance: METOPROLOL TARTRATE

REACTIONS (5)
  - Renal injury [Unknown]
  - Tubulointerstitial nephritis [Unknown]
  - Cardiac failure [Fatal]
  - Chronic kidney disease [Unknown]
  - Respiratory failure [Fatal]

NARRATIVE: CASE EVENT DATE: 20171207
